FAERS Safety Report 10605946 (Version 1)
Quarter: 2014Q4

REPORT INFORMATION
  Report Type: Spontaneous
  Country: US (occurrence: US)
  Receive Date: 20141125
  Receipt Date: 20141125
  Transmission Date: 20150529
  Serious: Yes (Hospitalization, Other)
  Sender: FDA-Public Use
  Company Number: US-AUROBINDO-AUR-APL-2014-12284

PATIENT
  Age: 29 Year
  Sex: Male

DRUGS (2)
  1. LEVETIRACETAM. [Suspect]
     Active Substance: LEVETIRACETAM
     Indication: SEIZURE
     Dosage: UNK
     Route: 065
  2. VALPROATE [Suspect]
     Active Substance: VALPROATE SODIUM
     Indication: SEIZURE
     Dosage: UNK
     Route: 065

REACTIONS (15)
  - Postictal psychosis [Unknown]
  - Postictal state [Unknown]
  - Disorientation [Unknown]
  - Aggression [Recovered/Resolved]
  - Agitation [Unknown]
  - Paranoia [Recovered/Resolved]
  - Seizure [Unknown]
  - Hallucinations, mixed [Unknown]
  - Aura [Unknown]
  - Delusion [Unknown]
  - Affective disorder [Unknown]
  - Memory impairment [Unknown]
  - Loss of consciousness [Unknown]
  - Euphoric mood [Unknown]
  - Disturbance in attention [Unknown]
